FAERS Safety Report 6084806-1 (Version None)
Quarter: 2009Q1

REPORT INFORMATION
  Report Type: 
  Country: None (occurrence: None)
  Receive Date: 20090218
  Receipt Date: 20090203
  Transmission Date: 20090719
  Serious: Yes (Other)
  Sender: FDA-Public Use
  Company Number: 09-000176

PATIENT
  Age: 18 Year
  Sex: Female
  Weight: 49.4 kg

DRUGS (2)
  1. FEMCON FE [Suspect]
     Indication: ACNE
     Dosage: 0.4 MG/35 MCG, ORAL
     Route: 048
     Dates: start: 20081201
  2. GARDASIL [Concomitant]

REACTIONS (3)
  - HEPATITIS [None]
  - INFECTIOUS MONONUCLEOSIS [None]
  - PRURITUS [None]
